FAERS Safety Report 4416069-4 (Version None)
Quarter: 2004Q3

REPORT INFORMATION
  Report Type: 
  Country: None (occurrence: None)
  Receive Date: 20040802
  Receipt Date: 20040719
  Transmission Date: 20050211
  Serious: Yes (Hospitalization)
  Sender: FDA-Public Use
  Company Number: 2004041002

PATIENT
  Age: 78 Year
  Sex: Female
  Weight: 55 kg

DRUGS (7)
  1. NEURONTIN [Suspect]
     Indication: HERPES ZOSTER
     Dosage: 1800 MG (3 IN 1 D), ORAL
     Route: 048
     Dates: start: 20031112, end: 20031201
  2. TRAMADOL/ACETAMINOPHEN (PARACETAMOL TRAMADOL) [Concomitant]
  3. DOMPERIDONE (DOMPERIDONE) [Concomitant]
  4. DIGOXIN [Concomitant]
  5. SOTALOL HCL [Concomitant]
  6. ALDACTAZIDE [Concomitant]
  7. FLUINDIONE (FLUINDIONE) [Concomitant]

REACTIONS (2)
  - ATAXIA [None]
  - FALL [None]
